FAERS Safety Report 6849487-5 (Version None)
Quarter: 2010Q3

REPORT INFORMATION
  Report Type: 
  Country: None (occurrence: None)
  Receive Date: 20100716
  Receipt Date: 20071203
  Transmission Date: 20110219
  Serious: No
  Sender: FDA-Public Use
  Company Number: US-PFIZER INC-2007082426

PATIENT
  Sex: Male
  Weight: 98.636 kg

DRUGS (7)
  1. CHANTIX [Suspect]
     Indication: SMOKING CESSATION THERAPY
     Dates: start: 20070925, end: 20071002
  2. ALL OTHER THERAPEUTIC PRODUCTS [Concomitant]
     Indication: HYPERAEMIA
  3. COUGH AND COLD PREPARATIONS [Concomitant]
     Indication: COUGH
  4. TYLENOL COLD NIGHT TIME [Concomitant]
     Indication: PAIN
  5. TYLENOL COLD NIGHT TIME [Concomitant]
     Indication: SLEEP DISORDER
  6. LORAZEPAM [Concomitant]
  7. ZOLPIDEM [Concomitant]

REACTIONS (4)
  - CONFUSIONAL STATE [None]
  - FATIGUE [None]
  - SENSATION OF HEAVINESS [None]
  - SOMNOLENCE [None]
